FAERS Safety Report 8979062 (Version 1)
Quarter: 2012Q4

REPORT INFORMATION
  Report Type: 
  Country: FR (occurrence: FR)
  Receive Date: 20121221
  Receipt Date: 20121221
  Transmission Date: 20130627
  Serious: Yes (Hospitalization)
  Sender: FDA-Public Use
  Company Number: FR-JNJFOC-20121205428

PATIENT
  Age: 83 Year
  Sex: Male

DRUGS (13)
  1. DUROGESIC [Suspect]
     Indication: DECUBITUS ULCER
     Route: 062
     Dates: start: 20121106, end: 20121107
  2. IMOVANE [Concomitant]
     Route: 048
     Dates: start: 20121106
  3. CRESTOR [Concomitant]
     Route: 065
  4. DIAFUSOR [Concomitant]
     Route: 065
  5. ADANCOR [Concomitant]
     Route: 065
  6. LASILIX [Concomitant]
     Route: 065
  7. ARIXTRA [Concomitant]
     Route: 065
  8. OMIX [Concomitant]
     Route: 065
  9. OMEPRAZOLE [Concomitant]
     Route: 065
  10. CORTANCYL [Concomitant]
     Route: 065
  11. PLAVIX [Concomitant]
     Route: 065
  12. SECTRAL [Concomitant]
     Route: 065
  13. DIFFU K [Concomitant]
     Route: 065

REACTIONS (3)
  - Hypotonia [Recovered/Resolved]
  - Miosis [Recovered/Resolved]
  - Altered state of consciousness [Recovered/Resolved]
